FAERS Safety Report 19512046 (Version 3)
Quarter: 2023Q4

REPORT INFORMATION
  Report Type: Report from Study
  Country: US (occurrence: US)
  Receive Date: 20210709
  Receipt Date: 20231125
  Transmission Date: 20240109
  Serious: Yes (Hospitalization, Other)
  Sender: FDA-Public Use
  Company Number: US-TEVA-2021-US-1930746

PATIENT
  Age: 46 Year
  Sex: Female

DRUGS (10)
  1. TREPROSTINIL [Suspect]
     Active Substance: TREPROSTINIL
     Indication: Pulmonary arterial hypertension
     Dosage: 30 NG/KG/MIN
     Route: 042
     Dates: start: 20201109
  2. TREPROSTINIL [Suspect]
     Active Substance: TREPROSTINIL
     Dosage: 41NG/KG/MIN
     Route: 042
     Dates: start: 202011
  3. TREPROSTINIL [Suspect]
     Active Substance: TREPROSTINIL
     Dosage: 37 NG/KG/MIN
     Route: 058
     Dates: start: 202110
  4. TREPROSTINIL [Suspect]
     Active Substance: TREPROSTINIL
     Dosage: 41 NG/KG/MIN
     Route: 042
     Dates: start: 20211026
  5. TREPROSTINIL [Suspect]
     Active Substance: TREPROSTINIL
     Dosage: 43 NG/KG/MIN
     Route: 042
     Dates: start: 20210524
  6. TREPROSTINIL [Suspect]
     Active Substance: TREPROSTINIL
     Dosage: 45G/KG/MIN
     Route: 042
     Dates: start: 20220901
  7. TREPROSTINIL [Suspect]
     Active Substance: TREPROSTINIL
     Dosage: 43 NG/KG/MIN
     Route: 042
     Dates: start: 20201117
  8. TREPROSTINIL [Suspect]
     Active Substance: TREPROSTINIL
     Dosage: 50 NG/KG/MIN
     Route: 042
     Dates: end: 2023
  9. TREPROSTINIL [Suspect]
     Active Substance: TREPROSTINIL
     Dosage: 50 NG/KG/MIN, CONTINUOUS
     Route: 042
     Dates: start: 202011
  10. FLOLAN [Concomitant]
     Active Substance: EPOPROSTENOL SODIUM
     Indication: Product used for unknown indication
     Dosage: STERILE DILUENT, 50 ML
     Route: 065

REACTIONS (6)
  - Drug abuse [Unknown]
  - Hospitalisation [Unknown]
  - Complication associated with device [Unknown]
  - Gastrointestinal haemorrhage [Unknown]
  - Fatigue [Unknown]
  - Product use issue [Unknown]

NARRATIVE: CASE EVENT DATE: 20220101
